FAERS Safety Report 10037086 (Version 1)
Quarter: 2014Q1

REPORT INFORMATION
  Report Type: Spontaneous
  Country: US (occurrence: None)
  Receive Date: 20140325
  Receipt Date: 20140325
  Transmission Date: 20141002
  Serious: Yes (Disabling)
  Sender: FDA-Public Use
  Company Number: None

PATIENT
  Age: 29 Year
  Sex: Male
  Weight: 61.24 kg

DRUGS (1)
  1. CIPROFLOXACIN [Suspect]
     Indication: PROSTATITIS
     Route: 048
     Dates: start: 20140313, end: 20140322

REACTIONS (6)
  - Tendon pain [None]
  - Burning sensation [None]
  - Fatigue [None]
  - Asthenia [None]
  - Balance disorder [None]
  - Disturbance in attention [None]
